FAERS Safety Report 4956570-8 (Version None)
Quarter: 2006Q1

REPORT INFORMATION
  Report Type: 
  Country: None (occurrence: None)
  Receive Date: 20060322
  Receipt Date: 20060309
  Transmission Date: 20060701
  Serious: Yes (Hospitalization)
  Sender: FDA-Public Use
  Company Number: HQWYE285510MAR06

PATIENT
  Age: 57 Year
  Sex: Male
  Weight: 92.1 kg

DRUGS (7)
  1. MYLOTARG [Suspect]
     Indication: MYELODYSPLASTIC SYNDROME
     Dosage: 6 MG 1X PER 1 DAY, INTRAVENOUS
     Route: 042
     Dates: start: 20060206, end: 20060206
  2. TRISENOX [Suspect]
     Indication: MYELODYSPLASTIC SYNDROME
     Dosage: 21 MG 1X PER 1 DAY, INTRAVENOUS DRIP
     Route: 041
     Dates: start: 20060130
  3. POTASSIUM CHLORIDE [Concomitant]
  4. BENADRYL [Concomitant]
  5. ACETAMINOPHEN [Concomitant]
  6. PREVACID [Concomitant]
  7. COMPAZINE [Concomitant]

REACTIONS (6)
  - ABDOMINAL DISTENSION [None]
  - ABDOMINAL PAIN [None]
  - CHROMATURIA [None]
  - EPISTAXIS [None]
  - NAUSEA [None]
  - VOMITING [None]
